FAERS Safety Report 5429312-X (Version None)
Quarter: 2007Q3

REPORT INFORMATION
  Report Type: 
  Country: None (occurrence: None)
  Receive Date: 20070829
  Receipt Date: 20070821
  Transmission Date: 20080115
  Serious: Yes (Hospitalization, Other)
  Sender: FDA-Public Use
  Company Number: PHBS2007SE14014

PATIENT
  Sex: Female

DRUGS (3)
  1. VOLTAREN [Suspect]
     Indication: FLANK PAIN
     Dosage: 100 MG, BID
     Route: 054
  2. DILAUDID [Suspect]
     Indication: FLANK PAIN
  3. CLINORIL [Suspect]
     Indication: FLANK PAIN
     Dosage: 200 MG, BID

REACTIONS (7)
  - CAESAREAN SECTION [None]
  - CARDIAC DISORDER [None]
  - DRUG EXPOSURE DURING PREGNANCY [None]
  - DUCTUS ARTERIOSUS STENOSIS FOETAL [None]
  - RIGHT VENTRICULAR DYSFUNCTION [None]
  - TRICUSPID VALVE INCOMPETENCE [None]
  - ULTRASOUND FOETAL [None]
